FAERS Safety Report 14773483 (Version 1)
Quarter: 2018Q2

REPORT INFORMATION
  Report Type: Spontaneous
  Country: SE (occurrence: SE)
  Receive Date: 20180418
  Receipt Date: 20180418
  Transmission Date: 20180711
  Serious: Yes (Other)
  Sender: FDA-Public Use
  Company Number: SE-GLAXOSMITHKLINE-SE2018GSK065750

PATIENT

DRUGS (1)
  1. VOLTAREN 23.2 MG/G [Suspect]
     Active Substance: DICLOFENAC DIETHYLAMINE
     Indication: PRODUCT USED FOR UNKNOWN INDICATION
     Dosage: UNK

REACTIONS (4)
  - Intentional product use issue [Unknown]
  - Alcohol poisoning [Unknown]
  - Poisoning [Unknown]
  - Drug abuse [Unknown]
